FAERS Safety Report 16315398 (Version 1)
Quarter: 2019Q2

REPORT INFORMATION
  Report Type: Spontaneous
  Country: US (occurrence: US)
  Receive Date: 20190515
  Receipt Date: 20190515
  Transmission Date: 20190711
  Serious: Yes (Other)
  Sender: FDA-Public Use
  Company Number: US-SA-2019SA124532

PATIENT
  Sex: Male
  Weight: 131.54 kg

DRUGS (1)
  1. LANTUS [Suspect]
     Active Substance: INSULIN GLARGINE
     Indication: BLOOD GLUCOSE
     Dosage: 50-70 UNITS DEPENDING ON BLOOD SUGAR
     Route: 065

REACTIONS (1)
  - Diabetes mellitus inadequate control [Unknown]
